FAERS Safety Report 7135841-3 (Version None)
Quarter: 2010Q4

REPORT INFORMATION
  Report Type: 
  Country: None (occurrence: None)
  Receive Date: 20101203
  Receipt Date: 20101130
  Transmission Date: 20110411
  Serious: Yes (Death, Hospitalization, Other)
  Sender: FDA-Public Use
  Company Number: MY-PFIZER INC-2010123338

PATIENT
  Age: 73 Year
  Sex: Male

DRUGS (3)
  1. CELEBREX [Suspect]
     Indication: ARTHRALGIA
     Dosage: 200 MG, AS NEEDED
     Route: 048
     Dates: start: 20080701
  2. MICARDIS [Concomitant]
     Indication: HYPERTENSION
     Dosage: 40 MG, UNK
     Dates: start: 20061201
  3. MICARDIS [Concomitant]
     Dosage: 80 MG, UNK

REACTIONS (4)
  - ABDOMINAL PAIN [None]
  - CEREBROVASCULAR ACCIDENT [None]
  - INTESTINAL OBSTRUCTION [None]
  - SEPSIS [None]
